FAERS Safety Report 25095316 (Version 1)
Quarter: 2025Q1

REPORT INFORMATION
  Report Type: Spontaneous
  Country: US (occurrence: None)
  Receive Date: 20250319
  Receipt Date: 20250319
  Transmission Date: 20250409
  Serious: Yes (Hospitalization)
  Sender: FDA-CTU
  Company Number: None

PATIENT
  Age: 80 Year
  Sex: Male

DRUGS (11)
  1. LENALIDOMIDE [Suspect]
     Active Substance: LENALIDOMIDE
     Indication: Plasma cell myeloma
     Dosage: FREQUENCY : DAILY;?
     Route: 048
  2. ACYCLOVIR [Concomitant]
     Active Substance: ACYCLOVIR
  3. CALCIUM TAB 500MG [Concomitant]
  4. DEXAMETHASONE [Concomitant]
     Active Substance: DEXAMETHASONE
  5. GABAPENTIN [Concomitant]
     Active Substance: GABAPENTIN
  6. LASIX TAB 20MG [Concomitant]
  7. LOSARTAN POT TAB 25MG [Concomitant]
  8. METOPROL TAR TAB 25MG [Concomitant]
  9. PROTONIX INJ 40MG [Concomitant]
  10. SIMVASTATIN [Concomitant]
     Active Substance: SIMVASTATIN
  11. VITAMIN B-12TAB 1000 TR [Concomitant]

REACTIONS (1)
  - Pulmonary embolism [None]

NARRATIVE: CASE EVENT DATE: 20240201
